FAERS Safety Report 18851350 (Version 2)
Quarter: 2022Q2

REPORT INFORMATION
  Report Type: Other
  Country: US (occurrence: None)
  Receive Date: 20210205
  Receipt Date: 20220525
  Transmission Date: 20220721
  Serious: No
  Sender: FDA-Public Use
  Company Number: US-ROCHE-2760609

PATIENT
  Age: 63 Year
  Sex: Female
  Weight: 103.51 kg

DRUGS (16)
  1. OCREVUS [Suspect]
     Active Substance: OCRELIZUMAB
     Indication: Progressive multiple sclerosis
     Dosage: ///2018: (PRESCRIBED AS 300 MG ON DAY 1 AND DAY 15 AND 600 MG ONCE IN 6 MONTHS). SHE SUBSEQUENTLY RE
     Route: 042
     Dates: start: 201805
  2. OCREVUS [Suspect]
     Active Substance: OCRELIZUMAB
     Indication: Relapsing-remitting multiple sclerosis
  3. OCREVUS [Suspect]
     Active Substance: OCRELIZUMAB
     Indication: Secondary progressive multiple sclerosis
  4. BUDESONIDE [Suspect]
     Active Substance: BUDESONIDE
     Indication: Nasopharyngitis
     Dosage: BREATHING TREATMENT
     Route: 055
  5. HYDROCODONE [Concomitant]
     Active Substance: HYDROCODONE
     Dosage: 10-325 MG DOSE; 1 TAB EVERY 4 HOURS AS NEEDED UP TO 6/DAY; STARTED?BEFORE OCREVUS
     Route: 048
  6. TEMAZEPAM [Concomitant]
     Active Substance: TEMAZEPAM
     Route: 048
  7. NP THYROID [Concomitant]
     Active Substance: LEVOTHYROXINE\LIOTHYRONINE
     Route: 048
  8. POTASSIUM CHLORIDE [Concomitant]
     Active Substance: POTASSIUM CHLORIDE
     Indication: Blood potassium decreased
  9. LANSOPRAZOLE [Concomitant]
     Active Substance: LANSOPRAZOLE
     Indication: Depression
     Route: 048
  10. POTASSIUM [Concomitant]
     Active Substance: POTASSIUM
  11. AMLODIPINE [Concomitant]
     Active Substance: AMLODIPINE BESYLATE
  12. PREGABALIN [Concomitant]
     Active Substance: PREGABALIN
  13. MIRALAX [Concomitant]
     Active Substance: POLYETHYLENE GLYCOL 3350
  14. ALBUTEROL SULFATE [Concomitant]
     Active Substance: ALBUTEROL SULFATE
  15. DULOXETINE [Concomitant]
     Active Substance: DULOXETINE
  16. METHYLPHENIDATE [Concomitant]
     Active Substance: METHYLPHENIDATE

REACTIONS (9)
  - Blood pressure increased [Not Recovered/Not Resolved]
  - Nasopharyngitis [Recovered/Resolved]
  - Candida infection [Recovered/Resolved]
  - COVID-19 [Recovered/Resolved]
  - Memory impairment [Unknown]
  - Insomnia [Recovered/Resolved]
  - Coronary artery disease [Not Recovered/Not Resolved]
  - Attention deficit hyperactivity disorder [Not Recovered/Not Resolved]
  - Pleurisy [Not Recovered/Not Resolved]

NARRATIVE: CASE EVENT DATE: 20200514
